FAERS Safety Report 7183549-0 (Version None)
Quarter: 2010Q4

REPORT INFORMATION
  Report Type: 
  Country: None (occurrence: None)
  Receive Date: 20101222
  Receipt Date: 20101217
  Transmission Date: 20110411
  Serious: Yes (Death, Other)
  Sender: FDA-Public Use
  Company Number: PHHY2010JP86444

PATIENT
  Sex: Male

DRUGS (7)
  1. ZOLEDRONATE T29581+ [Suspect]
     Indication: METASTASES TO BONE
     Dosage: 4 MG,SINGLE DOSE
     Route: 041
     Dates: start: 20071128, end: 20071128
  2. LOXONIN [Concomitant]
     Dosage: 180 MG, UNK
     Route: 048
     Dates: start: 20071004, end: 20071212
  3. OXYCONTIN [Concomitant]
     Dosage: 20 MG, UNK
     Route: 048
     Dates: start: 20071203, end: 20071212
  4. PRIMPERAN TAB [Concomitant]
     Dosage: 15 MG, UNK
     Route: 048
     Dates: start: 20071203, end: 20071212
  5. MAGNESIUM OXIDE [Concomitant]
     Dosage: 2 G, UNK
     Route: 048
     Dates: start: 20071203, end: 20071212
  6. DEPAS [Concomitant]
     Dosage: 0.5 MG, UNK
     Route: 048
     Dates: start: 20071203, end: 20071212
  7. MYSLEE [Concomitant]
     Dosage: 5 MG, UNK
     Route: 048
     Dates: start: 20071203, end: 20071212

REACTIONS (4)
  - BONE LESION [None]
  - DEATH [None]
  - MALIGNANT NEOPLASM PROGRESSION [None]
  - METASTASES TO CENTRAL NERVOUS SYSTEM [None]
